FAERS Safety Report 5023363-5 (Version None)
Quarter: 2006Q2

REPORT INFORMATION
  Report Type: 
  Country: None (occurrence: None)
  Receive Date: 20060612
  Receipt Date: 20060605
  Transmission Date: 20061013
  Serious: Yes (Hospitalization, Other)
  Sender: FDA-Public Use
  Company Number: GB-JNJFOC-20060204716

PATIENT
  Sex: Female
  Weight: 100 kg

DRUGS (14)
  1. REMICADE [Suspect]
     Indication: BEHCET'S SYNDROME
     Route: 042
  2. METHOTREXATE [Concomitant]
     Route: 065
  3. PREDNISOLONE [Concomitant]
     Route: 065
  4. AMITRIPTYLINE HCL [Concomitant]
     Route: 065
  5. ATENOLOL [Concomitant]
     Route: 065
  6. BISACODYL [Concomitant]
     Route: 065
  7. CITALOPRAM HYDROBROMIDE [Concomitant]
     Route: 065
  8. CO-AMILOFRUSE [Concomitant]
     Route: 065
  9. CO-AMILOFRUSE [Concomitant]
     Route: 065
  10. ETORICOXIB [Concomitant]
     Route: 065
  11. FOLIC ACID [Concomitant]
     Route: 065
  12. METHADONE [Concomitant]
     Route: 065
  13. OMEPRAZOLE [Concomitant]
     Route: 065
  14. RAMIPRIL [Concomitant]
     Route: 065

REACTIONS (1)
  - BONE MARROW FAILURE [None]
